FAERS Safety Report 17822375 (Version 1)
Quarter: 2020Q2

REPORT INFORMATION
  Report Type: Report from Study
  Country: CN (occurrence: CN)
  Receive Date: 20200526
  Receipt Date: 20200526
  Transmission Date: 20200714
  Serious: Yes (Other)
  Sender: FDA-Public Use
  Company Number: CN-ROCHE-2606180

PATIENT

DRUGS (1)
  1. BEVACIZUMAB. [Suspect]
     Active Substance: BEVACIZUMAB
     Indication: NON-SMALL CELL LUNG CANCER
     Dosage: 7.5-12 MG/KG (ONCE EVERY THREE WEEKS) FOR 6 CYCLES
     Route: 041

REACTIONS (5)
  - Ill-defined disorder [Unknown]
  - Vomiting [Unknown]
  - Hepatic function abnormal [Unknown]
  - Bone marrow failure [Unknown]
  - Rash [Unknown]
